FAERS Safety Report 26058197 (Version 1)
Quarter: 2025Q4

REPORT INFORMATION
  Report Type: Spontaneous
  Country: US (occurrence: US)
  Receive Date: 20251118
  Receipt Date: 20251118
  Transmission Date: 20260117
  Serious: No
  Sender: AUROBINDO
  Company Number: US-AUROBINDO-AUR-APL-2025-004272

PATIENT
  Age: 58 Year
  Sex: Male
  Weight: 95.25 kg

DRUGS (1)
  1. CLONAZEPAM [Suspect]
     Active Substance: CLONAZEPAM
     Indication: Product used for unknown indication
     Dosage: UNK
     Route: 065
     Dates: start: 20250110, end: 20250113

REACTIONS (4)
  - Reflexes abnormal [Unknown]
  - Sedation [Unknown]
  - Dizziness [Unknown]
  - Confusional state [Unknown]

NARRATIVE: CASE EVENT DATE: 20250111
